FAERS Safety Report 24623706 (Version 1)
Quarter: 2024Q4

REPORT INFORMATION
  Report Type: Spontaneous
  Country: US (occurrence: US)
  Receive Date: 20241115
  Receipt Date: 20241115
  Transmission Date: 20250114
  Serious: No
  Sender: MSN LABORATORIES PRIVATE LIMITED
  Company Number: US-MSNLABS-2024MSNSPO02403

PATIENT

DRUGS (3)
  1. LOSARTAN POTASSIUM [Suspect]
     Active Substance: LOSARTAN POTASSIUM
     Indication: Hypertension
     Dosage: 01 TABLETS A DAY
     Route: 065
     Dates: end: 20241028
  2. COREG [Concomitant]
     Active Substance: CARVEDILOL
     Indication: Myocardial infarction
     Route: 065
  3. COREG [Concomitant]
     Active Substance: CARVEDILOL

REACTIONS (3)
  - Wrong product administered [Unknown]
  - Product prescribing error [Unknown]
  - Chest pain [Recovered/Resolved]
